FAERS Safety Report 23792559 (Version 5)
Quarter: 2024Q2

REPORT INFORMATION
  Report Type: Spontaneous
  Country: NZ (occurrence: NZ)
  Receive Date: 20240429
  Receipt Date: 20240517
  Transmission Date: 20240716
  Serious: Yes (Hospitalization, Other)
  Sender: FDA-Public Use
  Company Number: NZ-MYLANLABS-2023M1106198

PATIENT
  Age: 50 Year
  Sex: Male

DRUGS (17)
  1. CLOZARIL [Suspect]
     Active Substance: CLOZAPINE
     Indication: Schizophrenia
     Dosage: 250 MILLIGRAM, QD (100MG TABS 2 TABS NOCTE AND 25MG TBAS 2 TABS NOCTE)
     Route: 048
     Dates: start: 20010117, end: 20240507
  2. PAROXETINE [Concomitant]
     Active Substance: PAROXETINE
     Dosage: 1 DOSAGE FORM, QD (1 AT 0800 WITH FOOD)
     Route: 065
  3. DOCUSATE SODIUM\SENNOSIDE B [Concomitant]
     Active Substance: DOCUSATE SODIUM\SENNOSIDE B
     Dosage: 1 DOSAGE FORM, BID
     Route: 065
  4. BENZTROPINE [Concomitant]
     Active Substance: BENZTROPINE
     Dosage: 0.25 DOSAGE FORM, QD (1/4 AT 2100)
     Route: 065
  5. AMISULPRIDE [Concomitant]
     Active Substance: AMISULPRIDE
     Dosage: 1 DOSAGE FORM, QD (0800)
     Route: 065
  6. ACETAMINOPHEN [Concomitant]
     Active Substance: ACETAMINOPHEN
     Dosage: 2 DOSAGE FORM, BID (2 AT 0800; 1200; 1700 AND 2100)
     Route: 065
  7. ZOPICLONE [Concomitant]
     Active Substance: ZOPICLONE
     Dosage: 1 DOSAGE FORM, QD (1 AT 2100)
     Route: 065
  8. CETIRIZINE HCL [Concomitant]
     Active Substance: CETIRIZINE HYDROCHLORIDE
     Dosage: 1 DOSAGE FORM, QD (1 AT 0800)
     Route: 065
  9. CASTOR OIL [Concomitant]
     Active Substance: CASTOR OIL
     Dosage: UNK (APPLY TO THE AFFECTED AREAS AS A BARRIER AS REQUIRED)
     Route: 065
  10. ZINC OXIDE [Concomitant]
     Active Substance: ZINC OXIDE
     Dosage: UNK (APPLY TO THE AFFECTED AREAS AS A BARRIER AS REQUIRED)
     Route: 065
  11. METHYLPREDNISOLONE ACEPONATE [Concomitant]
     Active Substance: METHYLPREDNISOLONE ACEPONATE
     Dosage: UNK, QD (APPLY SPARINGLY TO DRY ITCHY SKIN AROUND EARS ONCE DAILY AS REQUIRED)
     Route: 065
  12. FLUTICASONE PROPIONATE [Concomitant]
     Active Substance: FLUTICASONE PROPIONATE
     Dosage: 2 DOSAGE FORM, QD (2 EACH NOSTRIL ONCE DAILY
     Route: 045
  13. KETOCONAZOLE [Concomitant]
     Active Substance: KETOCONAZOLE
     Dosage: UNK, (APPLY TWICE WEEKLY ON TUESDAY AND FRIDAY)
     Route: 065
  14. BETAMETHASONE DIPROPIONATE [Concomitant]
     Active Substance: BETAMETHASONE DIPROPIONATE
     Indication: Pruritus
     Dosage: UNK, (APPLY SPARINGLY TO THE AFFECT AREAS THREE TIMES A DAY AS REQUIRED FOR ITCHY SKIN)
     Route: 065
  15. CETOMACROGOL;GLYCEROL [Concomitant]
     Dosage: UNK, TID (APPLY TO DRY SKIN THREE TIMES A DAY AS REQUIRED)
     Route: 065
  16. OMEGA-3 FATTY ACIDS [Concomitant]
     Active Substance: OMEGA-3 FATTY ACIDS
     Dosage: 1 DOSAGE FORM, QD (1 AT 0900)
     Route: 065
  17. GLYCERIN [Concomitant]
     Active Substance: GLYCERIN
     Dosage: UNK, (1 ONCE DAILY IN THE MORNING)
     Route: 065

REACTIONS (16)
  - Hospitalisation [Unknown]
  - Leukopenia [Recovering/Resolving]
  - Neutropenia [Recovering/Resolving]
  - Atypical lymphocytes increased [Unknown]
  - Metamyelocyte count increased [Not Recovered/Not Resolved]
  - Haemoglobin decreased [Recovering/Resolving]
  - Red blood cell count decreased [Recovering/Resolving]
  - Haematocrit decreased [Recovering/Resolving]
  - Monocyte count decreased [Not Recovered/Not Resolved]
  - Lymphocyte count decreased [Unknown]
  - Treatment noncompliance [Unknown]
  - Therapy interrupted [Unknown]
  - Immature granulocyte count increased [Not Recovered/Not Resolved]
  - Myelocyte count increased [Not Recovered/Not Resolved]
  - Promyelocyte count increased [Not Recovered/Not Resolved]
  - Neutrophil count increased [Not Recovered/Not Resolved]

NARRATIVE: CASE EVENT DATE: 20231004
